FAERS Safety Report 8208793-2 (Version None)
Quarter: 2012Q1

REPORT INFORMATION
  Report Type: 
  Country: None (occurrence: None)
  Receive Date: 20120314
  Receipt Date: 20111004
  Transmission Date: 20120608
  Serious: Yes (Hospitalization)
  Sender: FDA-Public Use
  Company Number: DE-ROCHE-1047882

PATIENT
  Sex: Female
  Weight: 53 kg

DRUGS (3)
  1. BONIVA [Suspect]
     Route: 042
     Dates: start: 19990301, end: 20090622
  2. BONIVA [Suspect]
     Indication: PRODUCT USED FOR UNKNOWN INDICATION
     Route: 042
     Dates: start: 19980101, end: 20080801
  3. ZOLEDRONIC ACID [Suspect]
     Indication: BREAST CANCER METASTATIC
     Dates: start: 20090801

REACTIONS (2)
  - OSTEONECROSIS OF JAW [None]
  - NEOPLASM PROGRESSION [None]
